FAERS Safety Report 4399445-8 (Version None)
Quarter: 2004Q3

REPORT INFORMATION
  Report Type: 
  Country: None (occurrence: None)
  Receive Date: 20040714
  Receipt Date: 20040624
  Transmission Date: 20050211
  Serious: No
  Sender: FDA-Public Use
  Company Number: 2004SE03595

PATIENT
  Age: 53 Year
  Sex: Male

DRUGS (1)
  1. CRESTOR [Suspect]
     Dosage: 10 MG DAILY PO
     Route: 048
     Dates: start: 20030803, end: 20030920

REACTIONS (6)
  - COLITIS [None]
  - GASTROINTESTINAL DISORDER [None]
  - INFLAMMATION [None]
  - PARAESTHESIA [None]
  - PERITONEAL DISORDER [None]
  - PYREXIA [None]
